APPROVED DRUG PRODUCT: PRECEF
Active Ingredient: CEFORANIDE
Strength: 2GM/VIAL
Dosage Form/Route: INJECTABLE;INJECTION
Application: N050554 | Product #003
Applicant: BRISTOL LABORATORIES INC DIV BRISTOL MYERS CO
Approved: May 24, 1984 | RLD: No | RS: No | Type: DISCN